FAERS Safety Report 8667375 (Version 4)
Quarter: 2013Q2

REPORT INFORMATION
  Report Type: Report from Study
  Country: JP (occurrence: JP)
  Receive Date: 20120717
  Receipt Date: 20130607
  Transmission Date: 20140414
  Serious: Yes (Hospitalization, Other)
  Sender: FDA-Public Use
  Company Number: JP-ASTELLAS-2012US006161

PATIENT
  Age: 64 Year
  Sex: Male

DRUGS (36)
  1. ERLOTINIB TABLET [Suspect]
     Indication: PANCREATIC CARCINOMA
     Dosage: 100 MG, UID/QD
     Route: 048
     Dates: start: 20120425, end: 20120516
  2. ERLOTINIB TABLET [Suspect]
     Dosage: 50 MG, UID/QD
     Route: 048
     Dates: start: 20120523
  3. GEMCITABINE [Suspect]
     Indication: PANCREATIC CARCINOMA
     Dosage: 1000 MG/M2, UID/QD
     Route: 041
     Dates: start: 20120425, end: 20120425
  4. GEMCITABINE [Suspect]
     Dosage: 1000 MG/M2, UID/QD
     Route: 041
     Dates: start: 20120502, end: 20120502
  5. GEMCITABINE [Suspect]
     Dosage: 1000 MG/M2, UID/QD
     Route: 041
     Dates: start: 20120509, end: 20120509
  6. GEMCITABINE [Suspect]
     Dosage: 800 MG/M2, UID/QD
     Route: 041
     Dates: start: 20120523, end: 20120523
  7. GEMCITABINE [Suspect]
     Dosage: 800 MG/M2, UID/QD
     Route: 041
     Dates: start: 20120530, end: 20120530
  8. GEMCITABINE [Suspect]
     Dosage: 800 MG/M2, UID/QD
     Route: 041
     Dates: start: 20120608, end: 20120608
  9. GEMCITABINE [Suspect]
     Dosage: 800 MG/M2, UID/QD
     Route: 041
     Dates: start: 20120620
  10. GEMCITABINE [Suspect]
     Dosage: 800 MG/M2, UID/QD
     Route: 041
     Dates: start: 20120626, end: 20120626
  11. GEMCITABINE [Suspect]
     Dosage: 800 MG/M2, UID/QD
     Route: 041
     Dates: start: 20120704, end: 20120704
  12. GEMCITABINE [Suspect]
     Dosage: 800 MG/M2, UID/QD
     Route: 041
     Dates: start: 20120718, end: 20120718
  13. GEMCITABINE [Suspect]
     Dosage: 800 MG/M2, UID/QD
     Route: 041
     Dates: start: 20120725, end: 20120725
  14. GEMCITABINE [Suspect]
     Dosage: 800 MG/M2, UID/QD
     Route: 041
     Dates: start: 20120801, end: 20120801
  15. GEMCITABINE [Suspect]
     Dosage: 800 MG/M2, UID/QD
     Route: 041
     Dates: start: 20120815, end: 20120815
  16. GEMCITABINE [Suspect]
     Dosage: 800 MG/M2, UID/QD
     Route: 041
     Dates: start: 20120822, end: 20120822
  17. GEMCITABINE [Suspect]
     Dosage: 800 MG/M2, UID/QD
     Route: 041
     Dates: start: 20120829, end: 20120829
  18. GEMCITABINE [Suspect]
     Dosage: 800 MG/M2, UID/QD
     Route: 041
     Dates: start: 20120912, end: 20120912
  19. GEMCITABINE [Suspect]
     Dosage: 800 MG/M2, UID/QD
     Route: 041
     Dates: start: 20120918, end: 20120918
  20. GEMCITABINE [Suspect]
     Dosage: 800 MG/M2, UID/QD
     Route: 041
     Dates: start: 20120926, end: 20120926
  21. GEMCITABINE [Suspect]
     Dosage: 800 MG/M2, UID/QD
     Route: 041
     Dates: start: 20121010, end: 20121010
  22. GEMCITABINE [Suspect]
     Dosage: 800 MG/M2, UID/QD
     Route: 041
     Dates: start: 20121017, end: 20121017
  23. GEMCITABINE [Suspect]
     Dosage: 800 MG/M2, UID/QD
     Route: 041
     Dates: start: 20121024, end: 20121024
  24. GEMCITABINE [Suspect]
     Dosage: 800 MG/M2, UID/QD
     Route: 041
     Dates: start: 20121107, end: 20121107
  25. GEMCITABINE [Suspect]
     Dosage: 800 MG/M2, UID/QD
     Route: 041
     Dates: start: 20121114
  26. BAYASPIRIN [Concomitant]
     Indication: PRODUCT USED FOR UNKNOWN INDICATION
     Dosage: 100 MG, UID/QD
     Route: 048
  27. ADALAT CR [Concomitant]
     Indication: PRODUCT USED FOR UNKNOWN INDICATION
     Dosage: 40 MG, UID/QD
     Route: 048
  28. FUROSEMIDE [Concomitant]
     Indication: PRODUCT USED FOR UNKNOWN INDICATION
     Dosage: 20 MG, UID/QD
     Route: 048
     Dates: end: 20120518
  29. PARIET [Concomitant]
     Indication: PRODUCT USED FOR UNKNOWN INDICATION
     Dosage: 10 MG, UID/QD
     Route: 048
  30. SELBEX [Concomitant]
     Indication: PROPHYLAXIS
     Dosage: 150 MG, UID/QD
     Route: 048
     Dates: end: 20120510
  31. LENDORMIN DAINIPPO [Concomitant]
     Indication: INSOMNIA
     Dosage: 0.25 MG, UNKNOWN/D
     Route: 048
     Dates: end: 20120815
  32. PURSENNID [Concomitant]
     Indication: CONSTIPATION
     Dosage: 24 MG, UNKNOWN/D
     Route: 048
     Dates: end: 20120815
  33. TRAMADOL HCL [Concomitant]
     Indication: ABDOMINAL PAIN
     Dosage: 1 DF, UNKNOWN/D
     Route: 048
     Dates: end: 20120530
  34. TEPRENONE [Concomitant]
     Indication: PRODUCT USED FOR UNKNOWN INDICATION
     Dosage: UNK
     Route: 065
  35. BROTIZOLAM [Concomitant]
     Indication: PRODUCT USED FOR UNKNOWN INDICATION
     Dosage: UNK
     Route: 065
  36. SENNOSIDES A+B [Concomitant]
     Indication: PRODUCT USED FOR UNKNOWN INDICATION
     Dosage: UNK
     Route: 065

REACTIONS (5)
  - Oropharyngeal pain [Unknown]
  - Decreased appetite [Recovering/Resolving]
  - Pyrexia [Unknown]
  - Rash [Recovering/Resolving]
  - Febrile neutropenia [Recovered/Resolved]
